FAERS Safety Report 19887334 (Version 1)
Quarter: 2021Q3

REPORT INFORMATION
  Report Type: Spontaneous
  Country: IT (occurrence: IT)
  Receive Date: 20210928
  Receipt Date: 20210928
  Transmission Date: 20211014
  Serious: Yes (Other)
  Sender: FDA-Public Use
  Company Number: IT-TEVA-2021-IT-1957986

PATIENT
  Age: 27 Day
  Sex: Male

DRUGS (4)
  1. VINCRISTINE [Suspect]
     Active Substance: VINCRISTINE
     Indication: ASTROCYTOMA
     Dosage: 0.96MILLIGRAM:OFF LABEL
     Route: 042
     Dates: start: 20210611, end: 20210611
  2. ANTRA [Concomitant]
     Active Substance: OMEPRAZOLE
     Dosage: 15MILLIGRAM
  3. ZOFRAN [Concomitant]
     Active Substance: ONDANSETRON HYDROCHLORIDE
     Dosage: 8MILLIGRAM
  4. DECADRON [Concomitant]
     Active Substance: DEXAMETHASONE
     Dosage: 4MILLIGRAM

REACTIONS (4)
  - Off label use [Recovered/Resolved]
  - Neutropenia [Recovered/Resolved]
  - Aphthous ulcer [Recovered/Resolved]
  - Pyrexia [Recovered/Resolved]

NARRATIVE: CASE EVENT DATE: 20210612
